FAERS Safety Report 13287571 (Version 1)
Quarter: 2017Q1

REPORT INFORMATION
  Report Type: Spontaneous
  Country: US (occurrence: US)
  Receive Date: 20170302
  Receipt Date: 20170302
  Transmission Date: 20170428
  Serious: Yes (Other)
  Sender: FDA-Public Use
  Company Number: US-PFIZER INC-2017084017

PATIENT
  Age: 100 Year
  Sex: Female

DRUGS (1)
  1. CELEBREX [Suspect]
     Active Substance: CELECOXIB
     Dosage: 200 MG, UNK

REACTIONS (5)
  - Rash erythematous [Unknown]
  - Eye pruritus [Unknown]
  - Rash pruritic [Unknown]
  - Blindness [Unknown]
  - Dry skin [Unknown]
